FAERS Safety Report 7428723-0 (Version None)
Quarter: 2011Q2

REPORT INFORMATION
  Report Type: 
  Country: None (occurrence: None)
  Receive Date: 20110421
  Receipt Date: 20110414
  Transmission Date: 20111010
  Serious: No
  Sender: FDA-Public Use
  Company Number: US-B.I. PHARMACEUTICALS,INC./RIDGEFIELD-2011-BP-06969BP

PATIENT
  Sex: Female

DRUGS (6)
  1. MULTIPLE VITAMINS [Concomitant]
  2. NORVASC [Concomitant]
     Indication: BLOOD PRESSURE
  3. NORVASC [Concomitant]
  4. PRADAXA [Suspect]
     Indication: ATRIAL FIBRILLATION
     Dosage: 300 MG
     Route: 048
     Dates: start: 20110303
  5. COD LIVER OIL [Concomitant]
  6. LISINOPRIL [Concomitant]
     Indication: BLOOD PRESSURE

REACTIONS (10)
  - AGEUSIA [None]
  - NAUSEA [None]
  - JOINT SWELLING [None]
  - PRURITUS GENERALISED [None]
  - ARTHRALGIA [None]
  - ANAL HAEMORRHAGE [None]
  - MOUTH HAEMORRHAGE [None]
  - DIARRHOEA [None]
  - GINGIVAL BLEEDING [None]
  - TOOTH FRACTURE [None]
